FAERS Safety Report 6279069-8 (Version None)
Quarter: 2009Q3

REPORT INFORMATION
  Report Type: 
  Country: None (occurrence: None)
  Receive Date: 20090723
  Receipt Date: 20090714
  Transmission Date: 20100115
  Serious: Yes (Death)
  Sender: FDA-Public Use
  Company Number: JP-NOVOPROD-288224

PATIENT
  Age: 80 Year
  Sex: Female
  Weight: 54 kg

DRUGS (10)
  1. NOVOSEVEN [Suspect]
     Indication: ACQUIRED HAEMOPHILIA
     Dosage: 10.8 MG -12 MG
     Route: 042
     Dates: start: 20090326, end: 20090411
  2. CORTICOSTEROIDS [Concomitant]
  3. PREDNISOLONE [Concomitant]
     Dosage: 30 MG, UNK
     Route: 048
     Dates: start: 20090330, end: 20090524
  4. ADONA                              /00056903/ [Concomitant]
     Dosage: 2 A
     Route: 042
     Dates: start: 20090323, end: 20090330
  5. TRANSAMIN [Concomitant]
     Dosage: 2 A
     Route: 042
     Dates: start: 20090323, end: 20090330
  6. GASTER                             /00706001/ [Concomitant]
     Dosage: 2 A
     Route: 042
     Dates: start: 20090325, end: 20090330
  7. KAYTWO                             /00357701/ [Concomitant]
     Dosage: 2 UNK, UNK
     Route: 042
     Dates: start: 20090325, end: 20090330
  8. SEFMAZON [Concomitant]
     Dosage: 2 G, UNK
     Route: 042
     Dates: start: 20090325, end: 20090330
  9. SOLU-CORTEF [Concomitant]
     Dosage: 100 MG, UNK
     Route: 042
     Dates: start: 20090325, end: 20090330
  10. PANSPORIN [Concomitant]
     Dosage: 2 G, UNK
     Route: 042
     Dates: start: 20090404, end: 20090411

REACTIONS (1)
  - BRONCHOPULMONARY ASPERGILLOSIS [None]
